FAERS Safety Report 9704230 (Version 2)
Quarter: 2013Q4

REPORT INFORMATION
  Report Type: Spontaneous
  Country: US (occurrence: US)
  Receive Date: 20131122
  Receipt Date: 20131202
  Transmission Date: 20140711
  Serious: Yes (Other)
  Sender: FDA-Public Use
  Company Number: US-PFIZER INC-2013329774

PATIENT
  Sex: Female

DRUGS (5)
  1. XALATAN [Suspect]
     Indication: GLAUCOMA
     Dosage: UNK
  2. XALATAN [Suspect]
     Dosage: UNK
     Route: 047
  3. TIMOLOL [Suspect]
     Indication: GLAUCOMA
     Dosage: 0.5 PERCENT
     Route: 047
  4. DORZOLAMIDE [Suspect]
     Indication: GLAUCOMA
     Dosage: 2 PERCENT
     Route: 047
  5. BRIMONIDINE [Suspect]
     Indication: GLAUCOMA
     Dosage: 0.2 PERCENT
     Route: 047

REACTIONS (2)
  - Eye haemorrhage [Unknown]
  - Hypertension [Unknown]
